FAERS Safety Report 6808511-6 (Version None)
Quarter: 2010Q2

REPORT INFORMATION
  Report Type: 
  Country: None (occurrence: None)
  Receive Date: 20100629
  Receipt Date: 20090712
  Transmission Date: 20101027
  Serious: Yes (Hospitalization)
  Sender: FDA-Public Use
  Company Number: US-PFIZER INC-2009220075

PATIENT
  Sex: Male
  Weight: 77.11 kg

DRUGS (4)
  1. NITROSTAT [Suspect]
     Indication: HYPERTENSION
     Dosage: UNIT DOSE: UNKNOWN;
     Dates: start: 20090201
  2. NITROSTAT [Suspect]
     Indication: AORTIC ANEURYSM
  3. ISOSORBIDE [Concomitant]
     Dosage: UNK
  4. METOPROLOL [Concomitant]
     Dosage: UNK

REACTIONS (1)
  - DRUG INEFFECTIVE [None]
